FAERS Safety Report 24839206 (Version 1)
Quarter: 2025Q1

REPORT INFORMATION
  Report Type: Spontaneous
  Country: US (occurrence: US)
  Receive Date: 20250114
  Receipt Date: 20250114
  Transmission Date: 20250409
  Serious: Yes (Other)
  Sender: SANOFI AVENTIS
  Company Number: US-SA-2025SA010891

PATIENT
  Age: 54 Year
  Sex: Male
  Weight: 217 kg

DRUGS (1)
  1. DUPIXENT [Suspect]
     Active Substance: DUPILUMAB
     Indication: Asthma
     Dosage: 300 MG, QOW

REACTIONS (3)
  - Pulmonary congestion [Unknown]
  - Pulmonary pain [Unknown]
  - Product dose omission issue [Unknown]
